FAERS Safety Report 14393922 (Version 1)
Quarter: 2018Q1

REPORT INFORMATION
  Report Type: Spontaneous
  Country: DE (occurrence: DE)
  Receive Date: 20180116
  Receipt Date: 20180116
  Transmission Date: 20180509
  Serious: Yes (Hospitalization)
  Sender: FDA-Public Use
  Company Number: DE-TEVA-2018-DE-843103

PATIENT
  Sex: Male

DRUGS (2)
  1. METFORMIN [Suspect]
     Active Substance: METFORMIN HYDROCHLORIDE
     Indication: TYPE 2 DIABETES MELLITUS
     Dosage: 2000 MILLIGRAM DAILY;
     Route: 065
  2. AZATHIOPRIN-RATIOPHARM FILMTABLETTEN [Suspect]
     Active Substance: AZATHIOPRINE
     Indication: MYASTHENIA GRAVIS
     Dosage: 375 MILLIGRAM DAILY;
     Route: 048

REACTIONS (3)
  - Lactic acidosis [Recovering/Resolving]
  - Hepatic failure [Recovering/Resolving]
  - Pancytopenia [Recovering/Resolving]
